FAERS Safety Report 7718132-9 (Version None)
Quarter: 2011Q3

REPORT INFORMATION
  Report Type: 
  Country: None (occurrence: None)
  Receive Date: 20110830
  Receipt Date: 20110822
  Transmission Date: 20111222
  Serious: Yes (Hospitalization)
  Sender: FDA-Public Use
  Company Number: CA-JNJFOC-20110703418

PATIENT
  Sex: Male
  Weight: 66 kg

DRUGS (9)
  1. FERROUS SULFATE TAB [Concomitant]
  2. OTHER THERAPEUTIC MEDICATIONS [Concomitant]
  3. PANTOPRAZOLE SODIUM [Concomitant]
  4. ATIVAN [Concomitant]
  5. PURINETHOL [Concomitant]
  6. CALCIUM WITH VITAMIN D [Concomitant]
  7. REMICADE [Suspect]
     Indication: CROHN'S DISEASE
     Route: 042
     Dates: start: 20091201, end: 20110608
  8. ACTONEL [Concomitant]
  9. PREDNISONE [Concomitant]

REACTIONS (2)
  - INTESTINAL OBSTRUCTION [None]
  - SMALL INTESTINE CARCINOMA [None]
